FAERS Safety Report 8780610 (Version 1)
Quarter: 2012Q4

REPORT INFORMATION
  Report Type: 
  Country: US (occurrence: GB)
  Receive Date: 20120913
  Receipt Date: 20120913
  Transmission Date: 20130627
  Serious: Yes (Hospitalization)
  Sender: FDA-Public Use
  Company Number: PHHO2012GB013018

PATIENT
  Age: 85 Year
  Sex: Female

DRUGS (1)
  1. DICLOFENAC [Suspect]
     Indication: OSTEOARTHRITIS
     Dosage: UNK
     Route: 048
     Dates: start: 20110712, end: 20120221

REACTIONS (3)
  - Circulatory collapse [Recovered/Resolved]
  - Anaemia [Recovered/Resolved]
  - Wound [Unknown]
